FAERS Safety Report 6682762-6 (Version None)
Quarter: 2010Q2

REPORT INFORMATION
  Report Type: 
  Country: None (occurrence: None)
  Receive Date: 20100415
  Receipt Date: 20100406
  Transmission Date: 20101027
  Serious: Yes (Other)
  Sender: FDA-Public Use
  Company Number: US-ROCHE-695199

PATIENT
  Age: 68 Year
  Sex: Male

DRUGS (1)
  1. BEVACIZUMAB [Suspect]
     Indication: NON-SMALL CELL LUNG CANCER
     Route: 065
     Dates: start: 20081101, end: 20091101

REACTIONS (3)
  - DRUG INEFFECTIVE [None]
  - MACULAR DEGENERATION [None]
  - RETINAL TEAR [None]
